FAERS Safety Report 10874688 (Version 2)
Quarter: 2015Q1

REPORT INFORMATION
  Report Type: Spontaneous
  Country: US (occurrence: US)
  Receive Date: 20150227
  Receipt Date: 20150302
  Transmission Date: 20150721
  Serious: Yes (Other)
  Sender: FDA-Public Use
  Company Number: US-BAYER-2015-025601

PATIENT
  Age: 37 Year
  Sex: Female

DRUGS (1)
  1. MIRENA [Suspect]
     Active Substance: LEVONORGESTREL
     Indication: CONTRACEPTION
     Dosage: 20 MCG/24HR, CONT
     Route: 015
     Dates: start: 20150108

REACTIONS (8)
  - Adnexa uteri pain [None]
  - Menorrhagia [None]
  - Embedded device [None]
  - Genital haemorrhage [None]
  - Procedural pain [None]
  - Headache [None]
  - Device expulsion [None]
  - Post procedural haemorrhage [None]

NARRATIVE: CASE EVENT DATE: 2015
